FAERS Safety Report 6821053-7 (Version None)
Quarter: 2010Q3

REPORT INFORMATION
  Report Type: 
  Country: None (occurrence: None)
  Receive Date: 20100707
  Receipt Date: 20071001
  Transmission Date: 20110219
  Serious: No
  Sender: FDA-Public Use
  Company Number: US-PFIZER INC-2007082070

PATIENT
  Sex: Female
  Weight: 71.363 kg

DRUGS (14)
  1. ZOLOFT [Suspect]
     Indication: DEPRESSED MOOD
     Dates: start: 20060101
  2. DIGOXIN [Suspect]
     Dosage: 0.125MG QD EVERY DAY TDD:0.125MG
  3. DIGOXIN [Suspect]
  4. MULTI-VITAMINS [Suspect]
  5. MULTI-VITAMINS [Suspect]
  6. FUROSEMIDE [Concomitant]
  7. POTASSIUM CHLORIDE [Concomitant]
  8. LEVOTHYROXINE SODIUM [Concomitant]
  9. METOPROLOL [Concomitant]
  10. WARFARIN SODIUM [Concomitant]
  11. ZETIA [Concomitant]
  12. VITACAL [Concomitant]
  13. VITAMIN B-12 [Concomitant]
  14. VITAMIN C [Concomitant]

REACTIONS (5)
  - CARDIOACTIVE DRUG LEVEL INCREASED [None]
  - DRUG DOSE OMISSION [None]
  - FEELING ABNORMAL [None]
  - SLEEP DISORDER [None]
  - VITAMIN K INCREASED [None]
